FAERS Safety Report 17134832 (Version 3)
Quarter: 2020Q1

REPORT INFORMATION
  Report Type: Spontaneous
  Country: US (occurrence: US)
  Receive Date: 20191210
  Receipt Date: 20200115
  Transmission Date: 20200409
  Serious: Yes (Other)
  Sender: FDA-Public Use
  Company Number: US-PFIZER INC-2019513386

PATIENT
  Age: 56 Year
  Sex: Male
  Weight: 81.65 kg

DRUGS (4)
  1. THERMACARE ULTRA [Suspect]
     Active Substance: CAMPHOR (SYNTHETIC)\CAPSICUM OLEORESIN\MENTHOL\METHYL SALICYLATE
     Indication: BACK PAIN
  2. THERMACARE ULTRA [Suspect]
     Active Substance: CAMPHOR (SYNTHETIC)\CAPSICUM OLEORESIN\MENTHOL\METHYL SALICYLATE
     Indication: MUSCLE STRAIN
     Dosage: UNK (APPLIED CREAM 1-2X PER DAY FOR APPROX. 5 DAYS)
     Route: 061
     Dates: start: 20191117, end: 20191121
  3. ADVIL LIQUI-GELS [Concomitant]
     Active Substance: IBUPROFEN
     Indication: BACK PAIN
     Dosage: 2 DF, AS NEEDED
     Dates: start: 2014
  4. ADVIL LIQUI-GELS [Concomitant]
     Active Substance: IBUPROFEN
     Indication: HEADACHE
     Dosage: 600 MG, 1X/DAY
     Dates: start: 20191117

REACTIONS (10)
  - Genital discolouration [Not Recovered/Not Resolved]
  - Second degree chemical burn of skin [Not Recovered/Not Resolved]
  - Skin swelling [Unknown]
  - Scar [Not Recovered/Not Resolved]
  - Penile burning sensation [Not Recovered/Not Resolved]
  - Skin exfoliation [Not Recovered/Not Resolved]
  - Product formulation issue [Not Recovered/Not Resolved]
  - Chemical burn of genitalia [Not Recovered/Not Resolved]
  - Skin weeping [Unknown]
  - Genital pain [Recovering/Resolving]

NARRATIVE: CASE EVENT DATE: 2019
